FAERS Safety Report 7991326-3 (Version None)
Quarter: 2011Q4

REPORT INFORMATION
  Report Type: 
  Country: None (occurrence: None)
  Receive Date: 20111219
  Receipt Date: 20111215
  Transmission Date: 20120403
  Serious: Yes (Other)
  Sender: FDA-Public Use
  Company Number: JP-PFIZER INC-2011301494

PATIENT
  Age: 59 Year
  Sex: Male

DRUGS (4)
  1. LYRICA [Concomitant]
     Dosage: UNK
     Route: 048
     Dates: start: 20111121
  2. AMLODIPINE [Concomitant]
     Dosage: UNK
  3. INDAPAMIDE [Concomitant]
     Dosage: UNK
  4. CELECOXIB [Suspect]
     Dosage: 200 MG, 1X/DAY
     Route: 048
     Dates: start: 20111121

REACTIONS (1)
  - DRUG ERUPTION [None]
